FAERS Safety Report 24819263 (Version 1)
Quarter: 2025Q1

REPORT INFORMATION
  Report Type: Spontaneous
  Country: US (occurrence: None)
  Receive Date: 20250108
  Receipt Date: 20250108
  Transmission Date: 20250409
  Serious: No
  Sender: FDA-CTU
  Company Number: None

PATIENT
  Age: 43 Year
  Sex: Female
  Weight: 100.24 kg

DRUGS (1)
  1. SYSTANE LUBRICANT [Suspect]
     Active Substance: POLYETHYLENE GLYCOL 400\PROPYLENE GLYCOL

REACTIONS (5)
  - Dry eye [None]
  - Photophobia [None]
  - Vision blurred [None]
  - Eye discharge [None]
  - Eye infection [None]

NARRATIVE: CASE EVENT DATE: 20241202
